FAERS Safety Report 6555540-6 (Version None)
Quarter: 2010Q1

REPORT INFORMATION
  Report Type: 
  Country: None (occurrence: None)
  Receive Date: 20100128
  Receipt Date: 20100125
  Transmission Date: 20100710
  Serious: Yes (Other)
  Sender: FDA-Public Use
  Company Number: US-SANOFI-AVENTIS-2010SA004898

PATIENT
  Age: 53 Year
  Sex: Female

DRUGS (4)
  1. PLAVIX [Suspect]
     Indication: CEREBRAL DISORDER
     Route: 048
     Dates: start: 20080801
  2. GABAPENTIN [Concomitant]
  3. OXYCODONE [Concomitant]
  4. CLORAZEPATE DIPOTASSIUM [Concomitant]

REACTIONS (6)
  - DYSKINESIA [None]
  - DYSPHAGIA [None]
  - MUSCLE TWITCHING [None]
  - OFF LABEL USE [None]
  - TONGUE NEOPLASM MALIGNANT STAGE UNSPECIFIED [None]
  - WRONG TECHNIQUE IN DRUG USAGE PROCESS [None]
